FAERS Safety Report 7478442-X (Version None)
Quarter: 2011Q2

REPORT INFORMATION
  Report Type: 
  Country: None (occurrence: None)
  Receive Date: 20110505
  Receipt Date: 20110419
  Transmission Date: 20111010
  Serious: Yes (Hospitalization)
  Sender: FDA-Public Use
  Company Number: 031243

PATIENT
  Sex: Female
  Weight: 73.9 kg

DRUGS (15)
  1. ACETAMINOPHEN W/ CODEINE [Concomitant]
  2. PREDNISONE [Concomitant]
  3. HYDROMORPHONE HCL [Concomitant]
  4. BARIUM SULFATE [Concomitant]
  5. BISACODYL [Concomitant]
  6. POLYETHYLENE GLYCOL [Concomitant]
  7. TYLENOL (CAPLET) [Concomitant]
  8. CIMZIA [Suspect]
     Indication: CROHN'S DISEASE
     Dosage: 400 MG 1X//MONTH SUBCUTANEOUS
     Route: 058
     Dates: start: 20101123
  9. PRENATAL VITAMINS /01549301/ [Concomitant]
  10. MIRALAX [Concomitant]
  11. ADALIMUMAB [Concomitant]
  12. DEXTROSE [Concomitant]
  13. DIPHENHYDRAMINE HCL [Concomitant]
  14. MAGNESIUM [Concomitant]
  15. ONDANSSETRON [Concomitant]

REACTIONS (3)
  - CAESAREAN SECTION [None]
  - DRUG EXPOSURE DURING PREGNANCY [None]
  - ILEOCOLECTOMY [None]
